FAERS Safety Report 11197691 (Version 3)
Quarter: 2016Q3

REPORT INFORMATION
  Report Type: Spontaneous
  Country: US (occurrence: US)
  Receive Date: 20150617
  Receipt Date: 20160701
  Transmission Date: 20161109
  Serious: No
  Sender: FDA-Public Use
  Company Number: US-TAKEDA-2014TUS004975

PATIENT
  Age: 67 Year
  Sex: Male
  Weight: 88.44 kg

DRUGS (9)
  1. ULORIC [Suspect]
     Active Substance: FEBUXOSTAT
     Dosage: 80 MG, QD
     Route: 048
     Dates: start: 201511, end: 20160127
  2. ULORIC [Suspect]
     Active Substance: FEBUXOSTAT
     Dosage: UNK UNK, QD
     Route: 048
     Dates: start: 20160127, end: 20160128
  3. ULORIC [Suspect]
     Active Substance: FEBUXOSTAT
     Dosage: 80 MG, QD
     Route: 048
     Dates: start: 201601
  4. COLCRYS [Suspect]
     Active Substance: COLCHICINE
     Dosage: UNK
     Route: 048
     Dates: start: 20160118
  5. COLCRYS [Suspect]
     Active Substance: COLCHICINE
     Indication: PAIN PROPHYLAXIS
     Dosage: 0.6 MG, BID
     Route: 048
     Dates: start: 20140522
  6. ULORIC [Suspect]
     Active Substance: FEBUXOSTAT
     Indication: GOUT
     Dosage: 40 MG, QD
     Route: 048
     Dates: start: 2013, end: 2013
  7. TESTOSTERONE. [Suspect]
     Active Substance: TESTOSTERONE
     Indication: PRODUCT USED FOR UNKNOWN INDICATION
     Dosage: UNK
     Route: 065
     Dates: end: 20140603
  8. ULORIC [Suspect]
     Active Substance: FEBUXOSTAT
     Dosage: 160 MG, QD
     Route: 048
     Dates: start: 201511, end: 201511
  9. ALEVE [Concomitant]
     Active Substance: NAPROXEN SODIUM
     Dosage: UNK, PRN
     Route: 048

REACTIONS (10)
  - Self esteem decreased [Not Recovered/Not Resolved]
  - Weight increased [Not Recovered/Not Resolved]
  - Alopecia [Not Recovered/Not Resolved]
  - Gout [Recovered/Resolved]
  - Early satiety [Not Recovered/Not Resolved]
  - Abdominal distension [Not Recovered/Not Resolved]
  - Dyspnoea [Not Recovered/Not Resolved]
  - Drug ineffective [Not Recovered/Not Resolved]
  - Wrong technique in product usage process [Recovered/Resolved]
  - Activities of daily living impaired [Not Recovered/Not Resolved]

NARRATIVE: CASE EVENT DATE: 2013
